FAERS Safety Report 6638803-5 (Version None)
Quarter: 2010Q1

REPORT INFORMATION
  Report Type: 
  Country: None (occurrence: None)
  Receive Date: 20100317
  Receipt Date: 20100305
  Transmission Date: 20100710
  Serious: Yes (Hospitalization)
  Sender: FDA-Public Use
  Company Number: FR-PFIZER INC-2010028385

PATIENT
  Age: 71 Year
  Sex: Male

DRUGS (10)
  1. ALDACTONE [Suspect]
     Dosage: 25 MG, 1X/DAY
     Route: 048
     Dates: start: 20060101
  2. ENALAPRIL MALEATE [Suspect]
     Dosage: 20 MG, 1X/DAY
     Route: 048
     Dates: start: 20060101
  3. FUROSEMIDE [Suspect]
     Dosage: 40 MG, 1X/DAY
     Route: 048
     Dates: start: 20060101
  4. PREVISCAN [Suspect]
     Dosage: 20 MG, 1X/DAY
     Route: 048
  5. GLICLAZIDE [Suspect]
     Dosage: 1 DF, 1X/DAY
     Route: 048
     Dates: start: 20091001, end: 20100205
  6. GLUCOPHAGE [Concomitant]
     Dosage: UNK
     Dates: start: 20060101
  7. CRESTOR [Concomitant]
     Dosage: UNK
     Dates: start: 20060101
  8. ESIDRIX [Concomitant]
     Dosage: UNK
     Dates: start: 20060101
  9. DIGOXIN [Concomitant]
     Dosage: UNK
     Dates: start: 20060101
  10. ACTOS [Concomitant]
     Dosage: UNK
     Dates: start: 20060101

REACTIONS (3)
  - PEMPHIGOID [None]
  - PRURITUS GENERALISED [None]
  - SKIN LESION [None]
